FAERS Safety Report 6242403-9 (Version None)
Quarter: 2009Q2

REPORT INFORMATION
  Report Type: 
  Country: None (occurrence: None)
  Receive Date: 20090622
  Receipt Date: 20090622
  Transmission Date: 20091009
  Serious: Yes (Other)
  Sender: FDA-Public Use
  Company Number: None

PATIENT
  Age: 21 Year
  Sex: Female
  Weight: 49.8957 kg

DRUGS (4)
  1. CLARITIN [Suspect]
     Indication: EYE PRURITUS
     Dosage: 10 MG ONCE A DAY PO
     Route: 048
     Dates: start: 20090617, end: 20090617
  2. CLARITIN [Suspect]
     Indication: RHINORRHOEA
     Dosage: 10 MG ONCE A DAY PO
     Route: 048
     Dates: start: 20090617, end: 20090617
  3. CLARITIN [Suspect]
     Indication: SNEEZING
     Dosage: 10 MG ONCE A DAY PO
     Route: 048
     Dates: start: 20090617, end: 20090617
  4. CLARITIN [Suspect]
     Indication: THROAT IRRITATION
     Dosage: 10 MG ONCE A DAY PO
     Route: 048
     Dates: start: 20090617, end: 20090617

REACTIONS (6)
  - ASTHENIA [None]
  - CHEST PAIN [None]
  - DIZZINESS [None]
  - DYSPNOEA [None]
  - HEART RATE INCREASED [None]
  - VOMITING [None]
